FAERS Safety Report 26205062 (Version 1)
Quarter: 2025Q4

REPORT INFORMATION
  Report Type: Spontaneous
  Country: US (occurrence: US)
  Receive Date: 20251227
  Receipt Date: 20251227
  Transmission Date: 20260117
  Serious: No
  Sender: ELI LILLY AND COMPANY
  Company Number: US-ELI_LILLY_AND_COMPANY-US202512019689

PATIENT
  Age: 68 Year
  Sex: Female

DRUGS (1)
  1. ZEPBOUND [Suspect]
     Active Substance: TIRZEPATIDE
     Indication: Hyperlipidaemia
     Dosage: 2.5 MG, UNKNOWN
     Route: 065
     Dates: start: 20241110

REACTIONS (3)
  - Drug intolerance [Unknown]
  - Underdose [Unknown]
  - Off label use [Unknown]
